FAERS Safety Report 16021765 (Version 1)
Quarter: 2019Q1

REPORT INFORMATION
  Report Type: Spontaneous
  Country: US (occurrence: US)
  Receive Date: 20190201
  Receipt Date: 20190201
  Transmission Date: 20190418
  Serious: No
  Sender: FDA-Public Use
  Company Number: None

PATIENT
  Age: 57 Year

DRUGS (1)
  1. IBRANCE [Suspect]
     Active Substance: PALBOCICLIB
     Indication: BREAST CANCER FEMALE
     Dosage: ?          OTHER FREQUENCY:3 WEEKS ON 1 WEEK ;?
     Route: 048
     Dates: start: 20190104

REACTIONS (2)
  - Headache [None]
  - Urinary tract infection [None]

NARRATIVE: CASE EVENT DATE: 20190128
